FAERS Safety Report 10521802 (Version 4)
Quarter: 2014Q4

REPORT INFORMATION
  Report Type: Spontaneous
  Country: US (occurrence: None)
  Receive Date: 20141014
  Receipt Date: 20141107
  Transmission Date: 20150528
  Serious: Yes (Life-Threatening, Hospitalization, Other)
  Sender: FDA-Public Use
  Company Number: ADR-2014-01870

PATIENT
  Age: 60 Year
  Sex: Male

DRUGS (2)
  1. AMLODIPINE [Suspect]
     Active Substance: AMLODIPINE BESYLATE
  2. LIORESAL [Suspect]
     Active Substance: BACLOFEN
     Indication: MUSCLE SPASTICITY

REACTIONS (22)
  - Hypotonia [None]
  - Seizure [None]
  - Depressed level of consciousness [None]
  - Accidental overdose [None]
  - Hypoxia [None]
  - Dyspnoea [None]
  - Pneumonia [None]
  - Confusional state [None]
  - Toxic encephalopathy [None]
  - Implant site oedema [None]
  - Blood urine present [None]
  - Cardiac arrest [None]
  - Hypotension [None]
  - Miosis [None]
  - Incorrect route of drug administration [None]
  - Dysarthria [None]
  - Body temperature decreased [None]
  - Dizziness [None]
  - Coma [None]
  - Neurogenic shock [None]
  - Encephalopathy [None]
  - Lethargy [None]

NARRATIVE: CASE EVENT DATE: 20141003
